FAERS Safety Report 19925694 (Version 2)
Quarter: 2021Q4

REPORT INFORMATION
  Report Type: Report from Study
  Country: None (occurrence: CA)
  Receive Date: 20211007
  Receipt Date: 20211010
  Transmission Date: 20220303
  Serious: Yes (Other)
  Sender: FDA-Public Use
  Company Number: CA-ABBVIE-21K-028-4109644-00

PATIENT
  Sex: Male

DRUGS (1)
  1. HUMIRA [Suspect]
     Active Substance: ADALIMUMAB
     Indication: Product used for unknown indication
     Route: 058
     Dates: start: 20080510

REACTIONS (9)
  - Dizziness [Unknown]
  - Ileal stenosis [Unknown]
  - Gastrointestinal disorder [Unknown]
  - Vertigo [Unknown]
  - Sleep disorder [Unknown]
  - Abdominal pain upper [Unknown]
  - Nausea [Unknown]
  - Ear infection [Unknown]
  - Headache [Unknown]

NARRATIVE: CASE EVENT DATE: 20200101
